FAERS Safety Report 4270661-9 (Version None)
Quarter: 2004Q1

REPORT INFORMATION
  Report Type: 
  Country: None (occurrence: None)
  Receive Date: 20040114
  Receipt Date: 20031212
  Transmission Date: 20041129
  Serious: Yes (Other)
  Sender: FDA-Public Use
  Company Number: WAES 0312USA01438

PATIENT
  Age: 49 Year
  Sex: Male
  Weight: 82 kg

DRUGS (2)
  1. LIPITOR [Concomitant]
     Route: 048
     Dates: start: 20020101, end: 20031206
  2. ZETIA [Suspect]
     Route: 048
     Dates: start: 20031008, end: 20031206

REACTIONS (7)
  - ALANINE AMINOTRANSFERASE INCREASED [None]
  - ASPARTATE AMINOTRANSFERASE INCREASED [None]
  - BLOOD CREATINE PHOSPHOKINASE INCREASED [None]
  - FATIGUE [None]
  - MALAISE [None]
  - MYALGIA [None]
  - ORGASMIC SENSATION DECREASED [None]
